FAERS Safety Report 20473423 (Version 1)
Quarter: 2022Q1

REPORT INFORMATION
  Report Type: Other
  Country: US (occurrence: None)
  Receive Date: 20220215
  Receipt Date: 20220215
  Transmission Date: 20220424
  Serious: Yes (Hospitalization)
  Sender: FDA-Public Use
  Company Number: US-ROCHE-2734569

PATIENT
  Age: 59 Year
  Sex: Female
  Weight: 62.198 kg

DRUGS (10)
  1. OCREVUS [Suspect]
     Active Substance: OCRELIZUMAB
     Indication: Relapsing multiple sclerosis
     Dosage: RECEIVED MOST RECENT DOSE ON 11/DEC/2020, 300MG ON DAY 1 AND DAY 15 LATER 600MG FOR EVERY 6 MONTHS
     Route: 042
     Dates: start: 20201211
  2. VALIUM [Suspect]
     Active Substance: DIAZEPAM
     Indication: Product used for unknown indication
     Dosage: 10MG OR 5MG AS NEEDED
     Route: 048
     Dates: start: 2015
  3. GLIMEPIRIDE [Concomitant]
     Active Substance: GLIMEPIRIDE
     Indication: Type 2 diabetes mellitus
     Route: 048
     Dates: start: 2015
  4. GABAPENTIN [Concomitant]
     Active Substance: GABAPENTIN
     Dosage: FOR DIABETES AND FOR LEGS
     Route: 048
     Dates: start: 2015
  5. VITAMIN B12 [Concomitant]
     Active Substance: CYANOCOBALAMIN
     Dosage: LIQUID OVER THE COUNTER
     Dates: start: 2015
  6. TYLENOL [Concomitant]
     Active Substance: ACETAMINOPHEN
     Indication: Headache
  7. VITAMIN D3 [Concomitant]
     Active Substance: CHOLECALCIFEROL
     Dosage: 50/000 ;ONGOING: YES
     Route: 048
     Dates: start: 2015
  8. BACLOFEN [Concomitant]
     Active Substance: BACLOFEN
  9. ATORVASTATIN [Concomitant]
     Active Substance: ATORVASTATIN
  10. DARVOCET [Concomitant]
     Active Substance: ACETAMINOPHEN\PROPOXYPHENE HYDROCHLORIDE

REACTIONS (18)
  - Headache [Recovered/Resolved]
  - Tinnitus [Unknown]
  - Oropharyngeal pain [Recovered/Resolved]
  - Cough [Recovered/Resolved]
  - Pruritus [Recovered/Resolved]
  - Dysgeusia [Recovered/Resolved]
  - Blood glucose fluctuation [Unknown]
  - Fall [Unknown]
  - Contusion [Unknown]
  - Arthritis [Unknown]
  - Multiple sclerosis [Unknown]
  - Throat tightness [Recovered/Resolved]
  - Pain [Not Recovered/Not Resolved]
  - Chills [Not Recovered/Not Resolved]
  - Musculoskeletal stiffness [Not Recovered/Not Resolved]
  - Throat irritation [Recovered/Resolved]
  - Blood glucose increased [Recovering/Resolving]
  - COVID-19 [Not Recovered/Not Resolved]

NARRATIVE: CASE EVENT DATE: 20201201
